FAERS Safety Report 8864814 (Version 1)
Quarter: 2012Q4

REPORT INFORMATION
  Report Type: 
  Country: US (occurrence: US)
  Receive Date: 20121024
  Receipt Date: 20121024
  Transmission Date: 20130627
  Serious: No
  Sender: FDA-Public Use
  Company Number: US-AMGEN-USASP2011069465

PATIENT
  Age: 52 Year
  Sex: Female
  Weight: 87.98 kg

DRUGS (11)
  1. ENBREL [Suspect]
     Indication: PRODUCT USED FOR UNKNOWN INDICATION
     Dosage: 50 mg, qwk
  2. FLEXERIL                           /00428402/ [Concomitant]
     Dosage: 10 mg, UNK
  3. AMBIEN [Concomitant]
     Dosage: 10 mg, UNK
  4. NEURONTIN [Concomitant]
     Dosage: 600 mg, UNK
  5. BUSPAR [Concomitant]
     Dosage: 5 mg, UNK
  6. OMEPRAZOLE [Concomitant]
     Dosage: 40 mg, UNK
  7. DILTIAZEM [Concomitant]
     Dosage: 300 mg, UNK
  8. ESTRADIOL [Concomitant]
     Dosage: 0.025 mg, UNK
  9. ZETIA [Concomitant]
     Dosage: 10 mg, UNK
  10. FOLIC ACID [Concomitant]
     Dosage: 20 mg, UNK
  11. METHOTREXATE [Concomitant]
     Dosage: 1 g, UNK

REACTIONS (5)
  - Fall [Unknown]
  - Dizziness [Unknown]
  - Ear infection [Unknown]
  - Pharyngitis [Not Recovered/Not Resolved]
  - Injection site pain [Unknown]
